FAERS Safety Report 8975969 (Version 1)
Quarter: 2012Q4

REPORT INFORMATION
  Report Type: 
  Country: US (occurrence: US)
  Receive Date: 20121219
  Receipt Date: 20121219
  Transmission Date: 20130627
  Serious: No
  Sender: FDA-Public Use
  Company Number: US-AMGEN-USASP2012066103

PATIENT
  Age: 74 Year
  Sex: Female
  Weight: 62.59 kg

DRUGS (8)
  1. PROLIA [Suspect]
     Indication: OSTEOPOROSIS POSTMENOPAUSAL
     Dosage: UNK UNK, q6mo
     Dates: start: 20121022
  2. PROTONIX [Concomitant]
     Dosage: 40 mg, UNK
     Route: 048
  3. LISINOPRIL [Concomitant]
     Dosage: 10 mg, UNK
  4. VITAMINS [Concomitant]
     Dosage: UNK
  5. CALTRATE WITH VITAMIN D [Concomitant]
     Dosage: 600 mg, bid
     Route: 048
  6. FISH OIL [Concomitant]
     Dosage: 1000 mg, bid
     Route: 048
  7. ATIVAN [Concomitant]
     Dosage: 1 mg, prn
     Route: 048
  8. ICAPS [Concomitant]
     Dosage: UNK

REACTIONS (6)
  - Tooth abscess [Unknown]
  - Sinus disorder [Unknown]
  - Eye pain [Unknown]
  - Toothache [Unknown]
  - Tooth infection [Unknown]
  - Back pain [Unknown]
